FAERS Safety Report 9601120 (Version 2)
Quarter: 2013Q4

REPORT INFORMATION
  Report Type: Spontaneous
  Country: US (occurrence: US)
  Receive Date: 20131004
  Receipt Date: 20131004
  Transmission Date: 20140711
  Serious: No
  Sender: FDA-Public Use
  Company Number: US-AMGEN-USASP2013035565

PATIENT
  Age: 61 Year
  Sex: Female
  Weight: 62.59 kg

DRUGS (7)
  1. ENBREL [Suspect]
     Indication: RHEUMATOID ARTHRITIS
     Dosage: 50 MG, QWK
     Route: 058
     Dates: start: 20130404
  2. CENTRUM                            /02217401/ [Concomitant]
     Dosage: UNK
  3. LORATADINE [Concomitant]
     Dosage: 10 MG, UNK
  4. ARAVA [Concomitant]
     Dosage: 10 MG, UNK
  5. ATENOLOL [Concomitant]
     Dosage: 25 MG, UNK
  6. LOVASTATIN [Concomitant]
     Dosage: 10 MG, UNK
  7. SIMVASTATIN [Concomitant]
     Dosage: 10 MG, UNK

REACTIONS (5)
  - Fatigue [Not Recovered/Not Resolved]
  - Somnolence [Unknown]
  - Feeling abnormal [Not Recovered/Not Resolved]
  - Injection site pain [Unknown]
  - Injection site swelling [Unknown]
